FAERS Safety Report 8889952 (Version 2)
Quarter: 2013Q1

REPORT INFORMATION
  Report Type: Spontaneous
  Country: JP (occurrence: None)
  Receive Date: 20121031
  Receipt Date: 20121127
  Transmission Date: 20140127
  Serious: Yes (Hospitalization)
  Sender: FDA-Public Use
  Company Number: AE-SPE-2012-020

PATIENT
  Age: 10 Year
  Sex: Female

DRUGS (2)
  1. MEIACT MS [Suspect]
     Indication: ANTIBIOTIC THERAPY
     Route: 048
     Dates: start: 20121006, end: 20121006
  2. IBUPROFEN [Concomitant]

REACTIONS (2)
  - Anaphylactic reaction [None]
  - Hepatic function abnormal [None]
